FAERS Safety Report 9368236 (Version 1)
Quarter: 2013Q2

REPORT INFORMATION
  Report Type: Spontaneous
  Country: US (occurrence: US)
  Receive Date: 20130625
  Receipt Date: 20130625
  Transmission Date: 20140414
  Serious: No
  Sender: FDA-Public Use
  Company Number: US-ASTELLAS-2013US004052

PATIENT
  Sex: Male
  Weight: 68 kg

DRUGS (13)
  1. VESICARE [Suspect]
     Indication: PRODUCT USED FOR UNKNOWN INDICATION
     Dosage: 10 MG, UID/QD
     Route: 048
  2. BENICAR [Concomitant]
     Indication: BLOOD PRESSURE
     Dosage: 5 MG, UID/QD
     Route: 048
  3. METOPROLOL TARTRATE [Concomitant]
     Indication: BLOOD PRESSURE
     Dosage: 50 MG, UID/QD
     Route: 048
  4. ACYCLOVIR                          /00587301/ [Concomitant]
     Indication: HERPES VIRUS INFECTION
     Dosage: 800 MG, UID/QD
     Route: 048
  5. NEXIUM                             /01479302/ [Concomitant]
     Indication: GASTROOESOPHAGEAL REFLUX DISEASE
     Dosage: 40 MG, UID/QD
     Route: 048
  6. WELCHOL [Concomitant]
     Indication: BLOOD CHOLESTEROL INCREASED
     Dosage: 65 MG, QID
     Route: 048
  7. FENOFIBRATE [Concomitant]
     Indication: BLOOD CHOLESTEROL INCREASED
     Dosage: 160 MG, UID/QD
     Route: 048
  8. SIMVASTATIN [Concomitant]
     Indication: BLOOD CHOLESTEROL INCREASED
     Dosage: 40 MG, UID/QD
     Route: 048
  9. XIFAXAN [Concomitant]
     Indication: BACTERIAL INFECTION
     Dosage: 550 MG, BID
     Route: 048
  10. LUNESTA [Concomitant]
     Indication: SLEEP DISORDER
     Dosage: 2 MG, UID/QD
     Route: 048
  11. ASPIRIN [Concomitant]
     Indication: CARDIAC DISORDER
     Dosage: 81 MG, UID/QD
     Route: 048
  12. OMEGA 3                            /01334101/ [Concomitant]
     Indication: PRODUCT USED FOR UNKNOWN INDICATION
     Dosage: 1000 MG, BID
     Route: 048
  13. PROBIOTICS [Concomitant]
     Indication: PROBIOTIC THERAPY
     Dosage: UNK
     Route: 065

REACTIONS (1)
  - Drug ineffective [Unknown]
